FAERS Safety Report 8527779 (Version 3)
Quarter: 2013Q1

REPORT INFORMATION
  Report Type: Spontaneous
  Country: US (occurrence: US)
  Receive Date: 20120424
  Receipt Date: 20130103
  Transmission Date: 20140127
  Serious: No
  Sender: FDA-Public Use
  Company Number: US-PFIZER INC-2012098554

PATIENT
  Age: 65 Year
  Sex: Female
  Weight: 71 kg

DRUGS (3)
  1. LYRICA [Suspect]
     Indication: NEURALGIA
     Dosage: 100 MG, 3X/DAY
     Route: 048
  2. LYRICA [Suspect]
     Indication: FIBROMYALGIA
     Dosage: 100 MG, 2X/DAY
     Route: 048
  3. LYRICA [Suspect]
     Indication: ANXIETY

REACTIONS (5)
  - Feeling abnormal [Recovering/Resolving]
  - Emotional disorder [Recovering/Resolving]
  - Malaise [Unknown]
  - General physical health deterioration [Recovering/Resolving]
  - Drug ineffective [Unknown]
